FAERS Safety Report 12556741 (Version 1)
Quarter: 2016Q3

REPORT INFORMATION
  Report Type: Spontaneous
  Country: GB (occurrence: GB)
  Receive Date: 20160714
  Receipt Date: 20160714
  Transmission Date: 20161109
  Serious: Yes (Other)
  Sender: FDA-Public Use
  Company Number: GB-PFIZER INC-2016304675

PATIENT
  Age: 72 Year
  Sex: Male
  Weight: 62 kg

DRUGS (1)
  1. CHAMPIX [Suspect]
     Active Substance: VARENICLINE TARTRATE
     Dosage: STARTER PACK (AS DIRECTED)
     Dates: start: 20151005, end: 20151012

REACTIONS (6)
  - Feeling abnormal [Recovered/Resolved]
  - Insomnia [Recovered/Resolved]
  - Lethargy [Recovered/Resolved]
  - Sleep phase rhythm disturbance [Recovered/Resolved]
  - Asthenia [Recovered/Resolved]
  - Nightmare [Recovered/Resolved]

NARRATIVE: CASE EVENT DATE: 201510
